FAERS Safety Report 9636594 (Version 1)
Quarter: 2013Q4

REPORT INFORMATION
  Report Type: Spontaneous
  Country: US (occurrence: US)
  Receive Date: 20131021
  Receipt Date: 20131021
  Transmission Date: 20140711
  Serious: Yes (Disabling)
  Sender: FDA-Public Use
  Company Number: US-ROCHE-1291462

PATIENT
  Sex: Female
  Weight: 47.22 kg

DRUGS (4)
  1. KLONOPIN [Suspect]
     Indication: PRODUCT USED FOR UNKNOWN INDICATION
     Route: 065
     Dates: start: 2005
  2. EFFEXOR XR [Concomitant]
     Indication: DEPRESSION
     Route: 065
     Dates: start: 200508
  3. VITAMIN B12 [Concomitant]
  4. SEROQUEL [Concomitant]
     Route: 065
     Dates: start: 2008

REACTIONS (3)
  - Hodgkin^s disease [Not Recovered/Not Resolved]
  - Colitis [Unknown]
  - Cholecystectomy [Unknown]
